FAERS Safety Report 5695348-7 (Version None)
Quarter: 2008Q2

REPORT INFORMATION
  Report Type: 
  Country: None (occurrence: None)
  Receive Date: 20080404
  Receipt Date: 20080401
  Transmission Date: 20081010
  Serious: Yes (Hospitalization)
  Sender: FDA-Public Use
  Company Number: JP-MERCK-0804USA00515

PATIENT
  Sex: Female

DRUGS (4)
  1. FOSAMAX [Suspect]
     Indication: OSTEOPOROSIS
     Route: 048
     Dates: start: 20071001
  2. FOSAMAX [Suspect]
     Route: 048
  3. BLOPRESS [Suspect]
     Indication: PROPHYLAXIS
     Route: 048
  4. ASPIRIN [Concomitant]
     Route: 048

REACTIONS (4)
  - DIZZINESS [None]
  - FLANK PAIN [None]
  - INAPPROPRIATE SCHEDULE OF DRUG ADMINISTRATION [None]
  - PYREXIA [None]
